FAERS Safety Report 13442109 (Version 1)
Quarter: 2017Q2

REPORT INFORMATION
  Report Type: Spontaneous
  Country: BR (occurrence: BR)
  Receive Date: 20170413
  Receipt Date: 20170413
  Transmission Date: 20170830
  Serious: Yes (Other)
  Sender: FDA-Public Use
  Company Number: BR-BRISTOL-MYERS SQUIBB COMPANY-BMS-2017-012847

PATIENT
  Weight: 87 kg

DRUGS (1)
  1. NIVOLUMAB [Suspect]
     Active Substance: NIVOLUMAB
     Indication: MALIGNANT MELANOMA
     Dosage: 1 DF, UNK
     Route: 065

REACTIONS (15)
  - Chest pain [Unknown]
  - Dyschezia [Unknown]
  - Mood altered [Unknown]
  - Pruritus [Unknown]
  - Faeces discoloured [Unknown]
  - Pollakiuria [Unknown]
  - Loss of personal independence in daily activities [Unknown]
  - Asthenia [Unknown]
  - Headache [Unknown]
  - Decreased appetite [Unknown]
  - Haematochezia [Unknown]
  - Myalgia [Unknown]
  - Confusional state [Unknown]
  - Somnolence [Unknown]
  - Rash [Unknown]
